FAERS Safety Report 5828765-2 (Version None)
Quarter: 2008Q3

REPORT INFORMATION
  Report Type: 
  Country: None (occurrence: None)
  Receive Date: 20080731
  Receipt Date: 20080718
  Transmission Date: 20090109
  Serious: Yes (Disabling)
  Sender: FDA-Public Use
  Company Number: GB-MERCK-0807GBR00044

PATIENT
  Age: 37 Year
  Sex: Male

DRUGS (1)
  1. PROPECIA [Suspect]
     Indication: ANDROGENETIC ALOPECIA
     Route: 048
     Dates: start: 20070801

REACTIONS (4)
  - CONDITION AGGRAVATED [None]
  - INFECTION [None]
  - TESTICULAR DISORDER [None]
  - TESTICULAR PAIN [None]
